FAERS Safety Report 16591733 (Version 1)
Quarter: 2019Q3

REPORT INFORMATION
  Report Type: Spontaneous
  Country: PK (occurrence: PK)
  Receive Date: 20190718
  Receipt Date: 20190718
  Transmission Date: 20191004
  Serious: Yes (Other)
  Sender: FDA-Public Use
  Company Number: PK-SA-2019SA191452

PATIENT
  Age: 45 Year
  Sex: Female

DRUGS (6)
  1. AMARYL [Suspect]
     Active Substance: GLIMEPIRIDE
     Indication: HYPERGLYCAEMIA
     Dosage: 4 MG, QD
     Route: 048
     Dates: start: 20190711
  2. DAONIL [Suspect]
     Active Substance: GLYBURIDE
     Indication: HYPERGLYCAEMIA
     Dosage: 5 MG, QD
     Route: 048
     Dates: start: 20190426, end: 20190710
  3. DULANE [Concomitant]
     Dosage: 300 MG, QD
     Route: 048
     Dates: start: 20190711
  4. NEUROBIOL [Concomitant]
     Indication: HYPOVITAMINOSIS
     Dosage: 50 MG, QD
     Route: 048
     Dates: start: 20190711
  5. ASCARD [Concomitant]
     Indication: THROMBOSIS
     Dosage: 75 MG, QD
     Route: 048
     Dates: start: 20190711
  6. NEOPHAGE [Concomitant]
     Indication: HYPERGLYCAEMIA
     Dosage: 500 MG, QD
     Route: 048
     Dates: start: 20190711

REACTIONS (3)
  - Hyperglycaemia [Not Recovered/Not Resolved]
  - Cerebrovascular accident [Recovering/Resolving]
  - Blood pressure increased [Unknown]

NARRATIVE: CASE EVENT DATE: 20190515
